FAERS Safety Report 5828527-6 (Version None)
Quarter: 2008Q3

REPORT INFORMATION
  Report Type: 
  Country: None (occurrence: None)
  Receive Date: 20080731
  Receipt Date: 20080722
  Transmission Date: 20090109
  Serious: Yes (Other)
  Sender: FDA-Public Use
  Company Number: GB-ASTRAZENECA-2008GB01385

PATIENT
  Sex: Female
  Weight: 54 kg

DRUGS (3)
  1. CRESTOR [Suspect]
     Indication: LIPIDS INCREASED
     Dosage: 5 MG
     Route: 048
     Dates: start: 20080408, end: 20080620
  2. BECLOMETHASONE DIPROPIONATE [Concomitant]
     Indication: ASTHMA
     Dosage: 50 UG
     Route: 055
  3. ALBUTEROL [Concomitant]
     Indication: ASTHMA
     Route: 055

REACTIONS (4)
  - BOWEL MOVEMENT IRREGULARITY [None]
  - NERVOUS SYSTEM DISORDER [None]
  - PARAESTHESIA [None]
  - WEIGHT DECREASED [None]
